FAERS Safety Report 16627715 (Version 1)
Quarter: 2019Q3

REPORT INFORMATION
  Report Type: Spontaneous
  Country: SE (occurrence: SE)
  Receive Date: 20190724
  Receipt Date: 20190724
  Transmission Date: 20191004
  Serious: Yes (Other)
  Sender: FDA-Public Use
  Company Number: SE-MYLANLABS-2019M1068980

PATIENT
  Age: 59 Year
  Sex: Male

DRUGS (4)
  1. LIPANTHYL 200 MG, KAPSEL, H?RD. [Suspect]
     Active Substance: FENOFIBRATE
     Indication: HYPERLIPIDAEMIA
     Dosage: 200 MILLIGRAM, QD
     Route: 048
     Dates: start: 20181213, end: 20190117
  2. ATENOLOL SANDOZ [Concomitant]
     Active Substance: ATENOLOL
     Dosage: UNK
  3. IBUMETIN [Concomitant]
     Active Substance: IBUPROFEN
     Dosage: UNK UNK, PRN
  4. FELODIPIN ACTAVIS [Concomitant]
     Dosage: UNK

REACTIONS (1)
  - Pruritus [Recovered/Resolved]

NARRATIVE: CASE EVENT DATE: 201901
